FAERS Safety Report 8344240-8 (Version None)
Quarter: 2012Q2

REPORT INFORMATION
  Report Type: 
  Country: None (occurrence: None)
  Receive Date: 20120402
  Receipt Date: 20120104
  Transmission Date: 20120825
  Serious: Yes (Other)
  Sender: FDA-Public Use
  Company Number: 315878USA

PATIENT
  Age: 53 Year
  Sex: Male
  Weight: 88.4514 kg

DRUGS (6)
  1. VENLAFAXINE [Suspect]
     Dosage: 300 MG (150 MG, 2 IN 1 D)
     Dates: start: 20110728
  2. FENTANYL CITRATE [Concomitant]
  3. AMITRIPTYLINE HCL [Concomitant]
  4. CLONAZEPAM [Concomitant]
  5. RISPERIDONE [Suspect]
     Dosage: 1.5 MG (0.5 MG, 3 IN 1 D)
     Dates: start: 20110728
  6. VENLAFAXINE HYDROCHLORIDE [Suspect]
     Indication: DEPRESSION
     Dosage: 450 MG (150 MG, 3 IN 1 D), ORAL
     Route: 048
     Dates: start: 20100601

REACTIONS (1)
  - WEIGHT INCREASED [None]
